FAERS Safety Report 16543320 (Version 3)
Quarter: 2019Q3

REPORT INFORMATION
  Report Type: Spontaneous
  Country: US (occurrence: US)
  Receive Date: 20190709
  Receipt Date: 20190806
  Transmission Date: 20191004
  Serious: Yes (Other)
  Sender: FDA-Public Use
  Company Number: US-AMGEN-USASP2019106496

PATIENT
  Age: 69 Year
  Sex: Female
  Weight: 68.84 kg

DRUGS (2)
  1. ENBREL [Suspect]
     Active Substance: ETANERCEPT
     Indication: PRODUCT USED FOR UNKNOWN INDICATION
     Dosage: UNK
     Route: 065
  2. METHOTREXATE. [Suspect]
     Active Substance: METHOTREXATE
     Indication: RHEUMATOID ARTHRITIS
     Dosage: 4 DOSAGE FORM (2.5 MILLIGRAM), QWK
     Route: 048
     Dates: start: 20140626, end: 20171121

REACTIONS (3)
  - Alopecia [Recovered/Resolved]
  - Drug hypersensitivity [Unknown]
  - Seizure [Recovered/Resolved]
